FAERS Safety Report 25224725 (Version 1)
Quarter: 2025Q2

REPORT INFORMATION
  Report Type: Spontaneous
  Country: US (occurrence: US)
  Receive Date: 20250422
  Receipt Date: 20250422
  Transmission Date: 20250717
  Serious: Yes (Other)
  Sender: BAYER HEALTHCARE PHARMACEUTICALS INC.
  Company Number: US-BAYER-2025A052859

PATIENT
  Age: 31 Year
  Sex: Female

DRUGS (1)
  1. SKYLA [Suspect]
     Active Substance: LEVONORGESTREL
     Indication: Intra-uterine contraceptive device insertion
     Dosage: 14?G/DAY
     Route: 015
     Dates: start: 202405

REACTIONS (2)
  - Intra-abdominal haemorrhage [None]
  - Pelvic pain [None]

NARRATIVE: CASE EVENT DATE: 20250310
